FAERS Safety Report 7216850-2 (Version None)
Quarter: 2011Q1

REPORT INFORMATION
  Report Type: 
  Country: None (occurrence: None)
  Receive Date: 20110104
  Receipt Date: 20110104
  Transmission Date: 20110831
  Serious: Yes (Life-Threatening)
  Sender: FDA-Public Use
  Company Number: None

PATIENT
  Age: 61 Year
  Sex: Female
  Weight: 65.7716 kg

DRUGS (1)
  1. ZOLPIDEM [Suspect]
     Indication: INSOMNIA
     Dosage: 1 TAB NIGHTLY/BEDTIME BUCCAL
     Route: 002
     Dates: start: 20101127, end: 20101226

REACTIONS (2)
  - DYSPNOEA [None]
  - CHEST PAIN [None]
